FAERS Safety Report 11105743 (Version 1)
Quarter: 2015Q2

REPORT INFORMATION
  Report Type: Spontaneous
  Country: US (occurrence: None)
  Receive Date: 20150511
  Receipt Date: 20150511
  Transmission Date: 20150821
  Serious: Yes (Death)
  Sender: FDA-Public Use
  Company Number: None

PATIENT
  Age: 68 Year
  Sex: Female
  Weight: 73.9 kg

DRUGS (3)
  1. PROPOFOL. [Suspect]
     Active Substance: PROPOFOL
     Indication: ENDOTRACHEAL INTUBATION
     Route: 042
     Dates: start: 20150205, end: 20150205
  2. PIPERACILLIN [Concomitant]
     Active Substance: PIPERACILLIN
  3. TAZOBACTAM [Concomitant]
     Active Substance: TAZOBACTAM

REACTIONS (8)
  - Endotracheal intubation complication [None]
  - Peripheral swelling [None]
  - Increased upper airway secretion [None]
  - Cardiac arrest [None]
  - Breast swelling [None]
  - Abdominal distension [None]
  - Local swelling [None]
  - Swollen tongue [None]

NARRATIVE: CASE EVENT DATE: 20150205
